FAERS Safety Report 19240969 (Version 1)
Quarter: 2021Q2

REPORT INFORMATION
  Report Type: Spontaneous
  Country: US (occurrence: US)
  Receive Date: 20210510
  Receipt Date: 20210510
  Transmission Date: 20210717
  Serious: Yes (Other)
  Sender: FDA-Public Use
  Company Number: None

PATIENT
  Age: 70 Year
  Sex: Male
  Weight: 108 kg

DRUGS (10)
  1. ZOLPIDEM [Concomitant]
     Active Substance: ZOLPIDEM TARTRATE
  2. MULTI VITAMIN [Concomitant]
     Active Substance: VITAMINS
  3. IRON [Concomitant]
     Active Substance: IRON
  4. STELLARA [Concomitant]
  5. PROPRANOLOL [Concomitant]
     Active Substance: PROPRANOLOL HYDROCHLORIDE
  6. ZINC. [Concomitant]
     Active Substance: ZINC
  7. CLONAZEPAM. [Concomitant]
     Active Substance: CLONAZEPAM
  8. E [Concomitant]
  9. FLAXSEED [Concomitant]
     Active Substance: FLAX SEED
  10. ROPINIROLE. [Suspect]
     Active Substance: ROPINIROLE
     Indication: RESTLESS LEGS SYNDROME
     Dosage: ?          QUANTITY:1 TABLET(S);?

REACTIONS (9)
  - Disorientation [None]
  - Sinus disorder [None]
  - Secretion discharge [None]
  - Nausea [None]
  - Diarrhoea [None]
  - Asthenia [None]
  - Headache [None]
  - Pharyngeal swelling [None]
  - Dyspnoea [None]

NARRATIVE: CASE EVENT DATE: 20210501
